FAERS Safety Report 12208228 (Version 1)
Quarter: 2016Q1

REPORT INFORMATION
  Report Type: Spontaneous
  Country: ZA (occurrence: ZA)
  Receive Date: 20160324
  Receipt Date: 20160324
  Transmission Date: 20160526
  Serious: Yes (Other)
  Sender: FDA-Public Use
  Company Number: ZA-JNJFOC-20160315256

PATIENT

DRUGS (12)
  1. FLUPENTHIXOL [Suspect]
     Active Substance: FLUPENTIXOL DECANOATE
     Indication: SCHIZOPHRENIA
     Dosage: FOR 12 WEEKS
     Route: 030
  2. FLUPENTHIXOL [Suspect]
     Active Substance: FLUPENTIXOL DECANOATE
     Indication: SCHIZOPHRENIFORM DISORDER
     Dosage: FOR 12 WEEKS
     Route: 030
  3. LORAZEPAM. [Concomitant]
     Active Substance: LORAZEPAM
     Indication: SEDATION
     Route: 065
  4. ORPHENADRINE [Concomitant]
     Active Substance: ORPHENADRINE
     Indication: EXTRAPYRAMIDAL DISORDER
     Route: 065
  5. RISPERIDONE. [Suspect]
     Active Substance: RISPERIDONE
     Indication: SCHIZOPHRENIFORM DISORDER
     Dosage: 1-3 MG; 1 WEEK LEAD-IN PERIOD CONTINUED FOR FURTHER 3 WEEKS DUE TO DELAYED ONSET OF RISPERIDONE LAI
     Route: 048
  6. FLUPENTHIXOL [Suspect]
     Active Substance: FLUPENTIXOL DECANOATE
     Indication: SCHIZOPHRENIA
     Dosage: 1-3 MG; 1 WEEK LEAD-IN PERIOD
     Route: 048
  7. BIPERIDEN [Concomitant]
     Active Substance: BIPERIDEN
     Indication: EXTRAPYRAMIDAL DISORDER
     Route: 065
  8. RISPERDAL CONSTA [Suspect]
     Active Substance: RISPERIDONE
     Indication: SCHIZOPHRENIA
     Dosage: FOR 12 WEEKS
     Route: 030
  9. RISPERIDONE. [Suspect]
     Active Substance: RISPERIDONE
     Indication: SCHIZOPHRENIA
     Dosage: 1-3 MG; 1 WEEK LEAD-IN PERIOD CONTINUED FOR FURTHER 3 WEEKS DUE TO DELAYED ONSET OF RISPERIDONE LAI
     Route: 048
  10. RISPERDAL CONSTA [Suspect]
     Active Substance: RISPERIDONE
     Indication: SCHIZOPHRENIFORM DISORDER
     Dosage: FOR 12 WEEKS
     Route: 030
  11. FLUPENTHIXOL [Suspect]
     Active Substance: FLUPENTIXOL DECANOATE
     Indication: SCHIZOPHRENIFORM DISORDER
     Dosage: 1-3 MG; 1 WEEK LEAD-IN PERIOD
     Route: 048
  12. PROPRANOLOL [Concomitant]
     Active Substance: PROPRANOLOL\PROPRANOLOL HYDROCHLORIDE
     Indication: AKATHISIA
     Route: 065

REACTIONS (2)
  - Weight increased [Unknown]
  - Brain scan abnormal [Unknown]
